FAERS Safety Report 7534885-7 (Version None)
Quarter: 2011Q2

REPORT INFORMATION
  Report Type: 
  Country: None (occurrence: None)
  Receive Date: 20110609
  Receipt Date: 20081029
  Transmission Date: 20111010
  Serious: Yes (Death, Hospitalization)
  Sender: FDA-Public Use
  Company Number: PHHO2008US12935

PATIENT
  Sex: Male

DRUGS (4)
  1. MYCOPHENOLATE MEFETIL [Concomitant]
     Dosage: UNK
  2. CYCLOSPORINE [Suspect]
     Indication: RENAL TRANSPLANT
     Dosage: 150 MG, QD
     Route: 048
     Dates: start: 20060828, end: 20071016
  3. PREDNISONE [Concomitant]
     Dosage: UNK
  4. TACROLIMUS [Concomitant]
     Dosage: UNK

REACTIONS (13)
  - ARTERIOSCLEROSIS [None]
  - PAIN [None]
  - SEPTIC SHOCK [None]
  - HYPOTENSION [None]
  - CARDIO-RESPIRATORY ARREST [None]
  - COMA [None]
  - LEFT VENTRICULAR HYPERTROPHY [None]
  - GANGRENE [None]
  - ASPERGILLOSIS [None]
  - PSEUDOMONAS INFECTION [None]
  - STAPHYLOCOCCAL INFECTION [None]
  - PULSE ABSENT [None]
  - ACUTE RESPIRATORY FAILURE [None]
